FAERS Safety Report 5298854-2 (Version None)
Quarter: 2007Q2

REPORT INFORMATION
  Report Type: 
  Country: None (occurrence: None)
  Receive Date: 20070410
  Receipt Date: 20070403
  Transmission Date: 20071010
  Serious: Yes (Other)
  Sender: FDA-Public Use
  Company Number: A0645794A

PATIENT
  Age: 81 Year
  Sex: Female

DRUGS (3)
  1. ADVAIR DISKUS 100/50 [Suspect]
     Indication: ASTHMA
     Dosage: 1 PUFF(S)/TWICE PER DAY/INHALED
     Route: 055
     Dates: start: 20070401
  2. AMLODIPINE [Concomitant]
  3. MONTELUKAST SODIUM [Concomitant]

REACTIONS (4)
  - CHOKING [None]
  - COUGH [None]
  - INCORRECT DOSE ADMINISTERED [None]
  - PHARMACEUTICAL PRODUCT COMPLAINT [None]
